FAERS Safety Report 17606067 (Version 3)
Quarter: 2020Q2

REPORT INFORMATION
  Report Type: Spontaneous
  Country: BR (occurrence: BR)
  Receive Date: 20200331
  Receipt Date: 20200402
  Transmission Date: 20200713
  Serious: Yes (Other)
  Sender: FDA-Public Use
  Company Number: BR-CELGENEUS-BRA-20191111022

PATIENT
  Age: 69 Year
  Sex: Female

DRUGS (2)
  1. VIDAZA [Suspect]
     Active Substance: AZACITIDINE
     Indication: MYELODYSPLASTIC SYNDROME
     Route: 058
     Dates: start: 20191126
  2. VIDAZA [Suspect]
     Active Substance: AZACITIDINE
     Route: 041
     Dates: start: 202002

REACTIONS (7)
  - Application site bruise [Recovered/Resolved]
  - Nausea [Not Recovered/Not Resolved]
  - Transformation to acute myeloid leukaemia [Unknown]
  - Injection site erythema [Unknown]
  - Injection site swelling [Unknown]
  - Injection site pain [Not Recovered/Not Resolved]
  - Skin lesion [Unknown]

NARRATIVE: CASE EVENT DATE: 20191126
